FAERS Safety Report 8256843-X (Version None)
Quarter: 2012Q1

REPORT INFORMATION
  Report Type: 
  Country: None (occurrence: None)
  Receive Date: 20120330
  Receipt Date: 20120330
  Transmission Date: 20120608
  Serious: Yes (Hospitalization, Disabling, Other)
  Sender: FDA-Public Use
  Company Number: None

PATIENT
  Age: 70 Year
  Sex: Female
  Weight: 50.3493 kg

DRUGS (1)
  1. LEVOFLOXACIN [Suspect]
     Indication: WOUND INFECTION
     Dates: start: 20110815, end: 20110901

REACTIONS (15)
  - LACERATION [None]
  - PHOTOPHOBIA [None]
  - CATARACT [None]
  - CELLULITIS [None]
  - ARTHRALGIA [None]
  - ABSCESS [None]
  - RASH [None]
  - FALL [None]
  - TENDONITIS [None]
  - HYPOAESTHESIA [None]
  - WRIST FRACTURE [None]
  - NERVE INJURY [None]
  - INFECTION [None]
  - NERVOUS SYSTEM DISORDER [None]
  - BLOOD GLUCOSE FLUCTUATION [None]
